FAERS Safety Report 23259699 (Version 1)
Quarter: 2023Q4

REPORT INFORMATION
  Report Type: Spontaneous
  Country: AR (occurrence: AR)
  Receive Date: 20231204
  Receipt Date: 20231204
  Transmission Date: 20240110
  Serious: Yes (Other)
  Sender: FDA-Public Use
  Company Number: AR-PFIZER INC-PV202300194368

PATIENT
  Age: 70 Year
  Sex: Female

DRUGS (1)
  1. AROMASIN [Suspect]
     Active Substance: EXEMESTANE
     Indication: Breast cancer metastatic
     Dosage: 25 MG, DAILY
     Dates: start: 20200630, end: 202310

REACTIONS (7)
  - Cerebral disorder [Unknown]
  - Mental impairment [Unknown]
  - Mobility decreased [Unknown]
  - Eating disorder [Unknown]
  - Dehydration [Unknown]
  - Asthenia [Unknown]
  - Nervous system disorder [Unknown]

NARRATIVE: CASE EVENT DATE: 20231001
